FAERS Safety Report 10606540 (Version 1)
Quarter: 2014Q4

REPORT INFORMATION
  Report Type: Spontaneous
  Country: US (occurrence: None)
  Receive Date: 20141124
  Receipt Date: 20141124
  Transmission Date: 20150529
  Serious: No
  Sender: FDA-Public Use
  Company Number: None

PATIENT
  Age: 54 Year
  Sex: Female
  Weight: 111.13 kg

DRUGS (1)
  1. AMOXICILLIN. [Suspect]
     Active Substance: AMOXICILLIN
     Indication: PHARYNGITIS STREPTOCOCCAL
     Route: 048
     Dates: start: 20141120, end: 20141121

REACTIONS (4)
  - Insomnia [None]
  - Feeling abnormal [None]
  - Feeling jittery [None]
  - Abnormal dreams [None]

NARRATIVE: CASE EVENT DATE: 20141121
